FAERS Safety Report 5614862-3 (Version None)
Quarter: 2008Q1

REPORT INFORMATION
  Report Type: 
  Country: None (occurrence: None)
  Receive Date: 20080131
  Receipt Date: 20080116
  Transmission Date: 20080703
  Serious: Yes (Other)
  Sender: FDA-Public Use
  Company Number: 022876

PATIENT
  Sex: Female

DRUGS (1)
  1. PORTIA-21 [Suspect]

REACTIONS (2)
  - DRUG INEFFECTIVE [None]
  - PANCREATITIS ACUTE [None]
